FAERS Safety Report 4825695-X (Version None)
Quarter: 2005Q4

REPORT INFORMATION
  Report Type: 
  Country: None (occurrence: None)
  Receive Date: 20051109
  Receipt Date: 20051028
  Transmission Date: 20060501
  Serious: Yes (Hospitalization, Other)
  Sender: FDA-Public Use
  Company Number: 2005_000056

PATIENT
  Age: 10 Year
  Sex: Female

DRUGS (4)
  1. DEPOCYT [Suspect]
     Indication: MENINGEAL LEUKAEMIA
     Dosage: 25 MG;X1; INTRATHECAL
     Route: 037
     Dates: start: 20050406, end: 20050711
  2. DEPAKENE [Concomitant]
  3. HYDROCORTISONE SODIUM SUCCINATE [Concomitant]
  4. URBANYL [Concomitant]

REACTIONS (13)
  - AMNESIA [None]
  - ARACHNOIDITIS [None]
  - BACK PAIN [None]
  - CONVULSION [None]
  - DIZZINESS [None]
  - ENCEPHALITIS [None]
  - GRAND MAL CONVULSION [None]
  - HEADACHE [None]
  - INTRACRANIAL HYPOTENSION [None]
  - LEUKAEMIA RECURRENT [None]
  - LOSS OF CONSCIOUSNESS [None]
  - NAUSEA [None]
  - PROCEDURAL COMPLICATION [None]
